FAERS Safety Report 12072769 (Version 2)
Quarter: 2016Q1

REPORT INFORMATION
  Report Type: Spontaneous
  Country: NL (occurrence: NL)
  Receive Date: 20160212
  Receipt Date: 20160218
  Transmission Date: 20160526
  Serious: Yes (Hospitalization)
  Sender: FDA-Public Use
  Company Number: NL-TEVA-633420ACC

PATIENT
  Age: 82 Year
  Sex: Female
  Weight: 58 kg

DRUGS (5)
  1. GEMCITABINE [Suspect]
     Active Substance: GEMCITABINE\GEMCITABINE HYDROCHLORIDE
     Indication: NON-SMALL CELL LUNG CANCER
     Dosage: EXTRA INFO: 2000 MG TWICE DAILY ON DAY 1 AND 8
     Route: 042
     Dates: start: 20150302
  2. CARBOPLATIN. [Suspect]
     Active Substance: CARBOPLATIN
     Indication: NON-SMALL CELL LUNG CANCER
     Dosage: EXTRA INFO: 400 MG
     Route: 042
     Dates: start: 20150302
  3. GADOLINIUM [Suspect]
     Active Substance: GADOLINIUM
     Indication: NUCLEAR MAGNETIC RESONANCE IMAGING
     Dosage: 1 DOSAGE FORMS DAILY; EXTRA INFO: 1X WITH MRI
     Route: 042
     Dates: start: 20150327
  4. NIFEDIPINE TABLET MGA 30MG [Concomitant]
     Dosage: 30 MILLIGRAM DAILY; ONCE DAILY ONE PIECE
     Route: 048
     Dates: start: 2010
  5. PARACETAMOL TABLET  500MG [Concomitant]
     Active Substance: ACETAMINOPHEN
     Dosage: EXTRA INFO: AS REQUIRED 2 PIECES
     Route: 048

REACTIONS (2)
  - Malaise [Recovered/Resolved]
  - Toxic skin eruption [Recovered/Resolved]

NARRATIVE: CASE EVENT DATE: 20150327
